FAERS Safety Report 15429184 (Version 1)
Quarter: 2018Q3

REPORT INFORMATION
  Report Type: Spontaneous
  Country: US (occurrence: US)
  Receive Date: 20180920
  Receipt Date: 20180920
  Transmission Date: 20181010
  Serious: Yes (Hospitalization, Disabling, Other)
  Sender: FDA-Public Use
  Company Number: None

PATIENT
  Age: 61 Year
  Sex: Female
  Weight: 81 kg

DRUGS (2)
  1. DULOXETINE HCL EC 60 MG CAP CITR (GENERIC FOR CYMBALTA ) [Suspect]
     Active Substance: DULOXETINE HYDROCHLORIDE
     Indication: CROHN^S DISEASE
     Dosage: ?          QUANTITY:30 CAPSULE(S);?
     Route: 048
     Dates: start: 20100908
  2. DULOXETINE HCL EC 60 MG CAP CITR (GENERIC FOR CYMBALTA ) [Suspect]
     Active Substance: DULOXETINE HYDROCHLORIDE
     Indication: DEPRESSION
     Dosage: ?          QUANTITY:30 CAPSULE(S);?
     Route: 048
     Dates: start: 20100908

REACTIONS (12)
  - Autonomic nervous system imbalance [None]
  - Cognitive disorder [None]
  - Fatigue [None]
  - Headache [None]
  - Meige^s syndrome [None]
  - Impaired work ability [None]
  - Quality of life decreased [None]
  - General physical health deterioration [None]
  - Cardiac disorder [None]
  - Dyspepsia [None]
  - Lung disorder [None]
  - Asthenia [None]

NARRATIVE: CASE EVENT DATE: 20170115
